FAERS Safety Report 10501259 (Version 1)
Quarter: 2014Q4

REPORT INFORMATION
  Report Type: Spontaneous
  Country: US (occurrence: None)
  Receive Date: 20141006
  Receipt Date: 20141006
  Transmission Date: 20150528
  Serious: No
  Sender: FDA-Public Use
  Company Number: None

PATIENT
  Age: 59 Year
  Sex: Female
  Weight: 96.16 kg

DRUGS (4)
  1. DULOXETINE [Suspect]
     Active Substance: DULOXETINE
     Indication: MYALGIA
     Dosage: 90 MG ONCE DAILY TAKEN BY MOUTH
     Route: 048
  2. DULOXETINE 30 MG ACTAVIS [Suspect]
     Active Substance: DULOXETINE
     Indication: DEPRESSION
     Dosage: 30 MG ONCE DAILY TAKEN BY MOUTH
     Route: 048
  3. DULOXETINE [Suspect]
     Active Substance: DULOXETINE
     Indication: DEPRESSION
     Dosage: 90 MG ONCE DAILY TAKEN BY MOUTH
     Route: 048
  4. DULOXETINE 30 MG ACTAVIS [Suspect]
     Active Substance: DULOXETINE
     Dosage: 30 MG ONCE DAILY TAKEN BY MOUTH
     Route: 048

REACTIONS (10)
  - Arthralgia [None]
  - Dyspnoea [None]
  - Anxiety [None]
  - Crying [None]
  - Gait disturbance [None]
  - Back pain [None]
  - Product substitution issue [None]
  - Balance disorder [None]
  - Myalgia [None]
  - Drug ineffective [None]

NARRATIVE: CASE EVENT DATE: 20141005
